FAERS Safety Report 9817933 (Version 1)
Quarter: 2013Q4

REPORT INFORMATION
  Report Type: Spontaneous
  Country: US (occurrence: None)
  Receive Date: 20131223
  Receipt Date: 20131223
  Transmission Date: 20140711
  Serious: Yes (Other)
  Sender: FDA-Public Use
  Company Number: 218551

PATIENT
  Age: 69 Year
  Sex: Male

DRUGS (6)
  1. PICATO [Suspect]
     Indication: ACTINIC KERATOSIS
     Dosage: ON SCALP
     Dates: start: 20120801, end: 20120803
  2. DIOVAN HCT (CO-DIOVAN) [Concomitant]
  3. IBUPROFEN (IBUPROFEN) [Concomitant]
  4. PRILOSEC [Concomitant]
  5. FISH OIL (FISH OIL) [Concomitant]
  6. GLUCOSAMINE (GLUCOSAMINE) [Concomitant]

REACTIONS (5)
  - Application site erythema [None]
  - Application site pruritus [None]
  - Application site pain [None]
  - Application site discolouration [None]
  - Wrong drug administered [None]
